FAERS Safety Report 11472308 (Version 1)
Quarter: 2015Q3

REPORT INFORMATION
  Report Type: Spontaneous
  Country: US (occurrence: US)
  Receive Date: 20150908
  Receipt Date: 20150908
  Transmission Date: 20151125
  Serious: No
  Sender: FDA-Public Use
  Company Number: US-SA-2015SA100132

PATIENT
  Age: 69 Year
  Sex: Male

DRUGS (5)
  1. TOUJEO [Suspect]
     Active Substance: INSULIN GLARGINE
     Indication: TYPE 2 DIABETES MELLITUS
     Dosage: DOSE:22 UNIT(S)
     Route: 065
     Dates: start: 2015, end: 2015
  2. SOLOSTAR [Concomitant]
     Active Substance: DEVICE
  3. LEVEMIR [Concomitant]
     Active Substance: INSULIN DETEMIR
  4. TOUJEO [Suspect]
     Active Substance: INSULIN GLARGINE
     Indication: TYPE 2 DIABETES MELLITUS
     Dosage: 30-4- UNITS ON SLIDING SCALE TWICE DAILY
     Route: 065
     Dates: start: 201506
  5. TOUJEO [Suspect]
     Active Substance: INSULIN GLARGINE
     Indication: TYPE 2 DIABETES MELLITUS
     Dosage: DOSE:40 UNIT(S)
     Route: 065
     Dates: start: 20150707

REACTIONS (15)
  - Dizziness [Unknown]
  - Dyspnoea [Unknown]
  - Drug ineffective [Unknown]
  - Blood glucose decreased [Unknown]
  - Pruritus [Unknown]
  - Asthenia [Unknown]
  - Flatulence [Unknown]
  - Blood glucose increased [Unknown]
  - Hypersensitivity [Unknown]
  - Off label use [Unknown]
  - Dizziness [Unknown]
  - Rash [Unknown]
  - Hyperhidrosis [Unknown]
  - Chest pain [Unknown]
  - Hypoglycaemia [Unknown]

NARRATIVE: CASE EVENT DATE: 2015
